FAERS Safety Report 23936195 (Version 2)
Quarter: 2024Q2

REPORT INFORMATION
  Report Type: Spontaneous
  Country: US (occurrence: US)
  Receive Date: 20240604
  Receipt Date: 20240627
  Transmission Date: 20240716
  Serious: Yes (Life-Threatening, Hospitalization, Other)
  Sender: FDA-Public Use
  Company Number: US-MLMSERVICE-20240513-PI058710-00177-1

PATIENT
  Age: 71 Year
  Sex: Female

DRUGS (2)
  1. HYDROCORTISONE [Suspect]
     Active Substance: HYDROCORTISONE\HYDROCORTISONE ACETATE
     Indication: Primary adrenal insufficiency
     Dosage: UNK
     Route: 065
  2. SALINE [Concomitant]
     Active Substance: SODIUM CHLORIDE
     Indication: Hyponatraemia
     Dosage: UNK, NORMAL SALINE BOLUSES
     Route: 065

REACTIONS (1)
  - Anaphylactic reaction [Recovering/Resolving]
